FAERS Safety Report 11942346 (Version 3)
Quarter: 2016Q1

REPORT INFORMATION
  Report Type: Report from Study
  Country: GB (occurrence: GB)
  Receive Date: 20160125
  Receipt Date: 20160316
  Transmission Date: 20160526
  Serious: Yes (Hospitalization)
  Sender: FDA-Public Use
  Company Number: GB-BEH-2016057997

PATIENT
  Age: 22 Year
  Sex: Female

DRUGS (2)
  1. RIASTAP [Suspect]
     Active Substance: FIBRINOGEN HUMAN
     Indication: POSTPARTUM HAEMORRHAGE
     Dates: start: 20140406
  2. RIASTAP [Suspect]
     Active Substance: FIBRINOGEN HUMAN
     Dosage: NUMBER OF IMP BOTTLES GIVEN: 4

REACTIONS (1)
  - Uterine infection [Recovered/Resolved]

NARRATIVE: CASE EVENT DATE: 20140426
